FAERS Safety Report 8408357-1 (Version None)
Quarter: 2012Q2

REPORT INFORMATION
  Report Type: 
  Country: None (occurrence: None)
  Receive Date: 20120323
  Receipt Date: 20111222
  Transmission Date: 20120825
  Serious: Yes (Hospitalization)
  Sender: FDA-Public Use
  Company Number: 163-21880-11114253

PATIENT
  Age: 71 Year
  Sex: Female

DRUGS (10)
  1. DEXAMETHASONE [Concomitant]
  2. SYNTHROID [Concomitant]
  3. SENIOR VITAMINS (MULTIVITAMINS) [Concomitant]
  4. SMZ-TMP DS (BACTRIM) [Concomitant]
  5. REVLIMID [Suspect]
     Indication: MULTIPLE MYELOMA
     Dosage: 25 MG, X 21 DAYS, ORAL ; 25 MG, X 21 DAYS, PO ; 15 MG, QD X 21 DAYS, PO
     Route: 048
     Dates: start: 20110809
  6. REVLIMID [Suspect]
     Indication: MULTIPLE MYELOMA
     Dosage: 25 MG, X 21 DAYS, ORAL ; 25 MG, X 21 DAYS, PO ; 15 MG, QD X 21 DAYS, PO
     Route: 048
     Dates: start: 20111001, end: 20111220
  7. REVLIMID [Suspect]
     Indication: MULTIPLE MYELOMA
     Dosage: 25 MG, X 21 DAYS, ORAL ; 25 MG, X 21 DAYS, PO ; 15 MG, QD X 21 DAYS, PO
     Route: 048
     Dates: start: 20090101
  8. AZITHROMYCIN [Concomitant]
  9. LEVOXYL [Concomitant]
  10. ASPIRIN [Concomitant]

REACTIONS (2)
  - ANAEMIA [None]
  - THROMBOCYTOPENIA [None]
